FAERS Safety Report 7978853-X (Version None)
Quarter: 2011Q4

REPORT INFORMATION
  Report Type: 
  Country: None (occurrence: None)
  Receive Date: 20111214
  Receipt Date: 20111208
  Transmission Date: 20120403
  Serious: Yes (Life-Threatening, Other)
  Sender: FDA-Public Use
  Company Number: US-PFIZER INC-2011273618

PATIENT
  Sex: Female
  Weight: 80.726 kg

DRUGS (6)
  1. METHOTREXATE [Concomitant]
     Indication: RHEUMATOID ARTHRITIS
     Dosage: 17.5 MG, WEEKLY
     Route: 048
     Dates: start: 20070310
  2. TOFACITINIB CITRATE [Suspect]
     Indication: RHEUMATOID ARTHRITIS
     Dosage: 10 MG, 2X/DAY
     Route: 048
     Dates: start: 20101101
  3. ASPIRIN [Concomitant]
     Indication: PROPHYLAXIS
     Dosage: 81 MG, 1X/DAY
     Route: 048
     Dates: start: 20080103
  4. LEVOTHYROXINE SODIUM [Suspect]
     Indication: HYPOTHYROIDISM
     Dosage: 200 UG, 1X/DAY
     Route: 048
     Dates: start: 20101106
  5. FOLIC ACID [Concomitant]
     Indication: SUPPLEMENTATION THERAPY
     Dosage: 1 MG, 1X/DAY
     Route: 048
     Dates: start: 20070310
  6. IBUPROFEN (ADVIL) [Concomitant]
     Indication: PAIN
     Dosage: 200 MG, AS NEEDED
     Route: 048
     Dates: start: 20000101

REACTIONS (2)
  - ATRIAL FIBRILLATION [None]
  - TRANSIENT ISCHAEMIC ATTACK [None]
